FAERS Safety Report 14569303 (Version 1)
Quarter: 2018Q1

REPORT INFORMATION
  Report Type: Spontaneous
  Country: AU (occurrence: AU)
  Receive Date: 20180223
  Receipt Date: 20180223
  Transmission Date: 20180509
  Serious: Yes (Hospitalization, Other)
  Sender: FDA-Public Use
  Company Number: AU-IMPAX LABORATORIES, INC-2018-IPXL-00503

PATIENT
  Age: 51 Year
  Sex: Male

DRUGS (5)
  1. PROPRANOLOL HYDROCHLORIDE IR [Suspect]
     Active Substance: PROPRANOLOL HYDROCHLORIDE
     Dosage: GRADUALLY WEANED OVER 7 DAYS, UNK
     Route: 048
  2. CARBIMAZOLE [Suspect]
     Active Substance: CARBIMAZOLE
     Indication: HYPERTHYROIDISM
     Dosage: 10 MG, 3 /DAY
     Route: 048
  3. PROPRANOLOL HYDROCHLORIDE IR [Suspect]
     Active Substance: PROPRANOLOL HYDROCHLORIDE
     Dosage: 40 MG, 2 /DAY
     Route: 048
  4. PROPRANOLOL HYDROCHLORIDE IR [Suspect]
     Active Substance: PROPRANOLOL HYDROCHLORIDE
     Dosage: 80 MG, 4 /DAY
     Route: 048
  5. PROPRANOLOL HYDROCHLORIDE IR [Suspect]
     Active Substance: PROPRANOLOL HYDROCHLORIDE
     Indication: HYPERTHYROIDISM
     Dosage: 40 MG, 2 /DAY
     Route: 048

REACTIONS (6)
  - Staphylococcal infection [Unknown]
  - Thyrotoxic crisis [Recovered/Resolved]
  - Sinusitis [Unknown]
  - Agranulocytosis [Recovering/Resolving]
  - Ulcer [Unknown]
  - Sepsis [Unknown]
